FAERS Safety Report 13522795 (Version 1)
Quarter: 2017Q2

REPORT INFORMATION
  Report Type: Spontaneous
  Country: US (occurrence: US)
  Receive Date: 20170508
  Receipt Date: 20170508
  Transmission Date: 20170830
  Serious: Yes (Life-Threatening)
  Sender: FDA-Public Use
  Company Number: US-CUMBERLAND PHARMACEUTICALS INC.-2020392

PATIENT
  Age: 3 Year
  Sex: Male
  Weight: 15.8 kg

DRUGS (1)
  1. CALDOLOR [Suspect]
     Active Substance: IBUPROFEN
     Indication: PAIN
     Route: 042
     Dates: start: 20170427, end: 20170427

REACTIONS (1)
  - Pulse absent [Recovered/Resolved]

NARRATIVE: CASE EVENT DATE: 20170427
